FAERS Safety Report 4501813-8 (Version None)
Quarter: 2004Q3

REPORT INFORMATION
  Report Type: 
  Country: None (occurrence: None)
  Receive Date: 20040928
  Receipt Date: 20040602
  Transmission Date: 20050211
  Serious: No
  Sender: FDA-Public Use
  Company Number: 04P-163-0262544-00

PATIENT
  Age: 54 Year
  Sex: Female

DRUGS (10)
  1. HUMIRA [Suspect]
     Indication: RHEUMATOID ARTHRITIS
     Dosage: 40 MG 1 IN 2 WK SUBCUTANEOUS
     Route: 058
     Dates: start: 20040501
  2. PREDNISONE [Concomitant]
  3. LELFUNOMIDE [Concomitant]
  4. TOLTERODINE TARTRATE [Concomitant]
  5. ZETIA [Concomitant]
  6. BUPROPION HYDROCHLORIDE [Concomitant]
  7. VENLAFAXINE HYDROCHLORIDE [Concomitant]
  8. PROPANOLOL HYDROCHLORIDE [Concomitant]
  9. TRAZODONE HCL [Concomitant]
  10. PROPACET 100 [Concomitant]

REACTIONS (2)
  - ASTHENIA [None]
  - DIZZINESS [None]
